FAERS Safety Report 24839163 (Version 1)
Quarter: 2025Q1

REPORT INFORMATION
  Report Type: Spontaneous
  Country: US (occurrence: US)
  Receive Date: 20250114
  Receipt Date: 20250114
  Transmission Date: 20250409
  Serious: Yes (Other)
  Sender: IBSA INSTITUT BIOCHIMIQUE
  Company Number: US-IBSA PHARMA INC.-2024IBS000499

PATIENT

DRUGS (1)
  1. TIROSINT-SOL [Suspect]
     Active Substance: LEVOTHYROXINE SODIUM
     Indication: Hypothyroidism
     Dosage: 88 MICROGRAM, QD
     Dates: start: 2002

REACTIONS (12)
  - Hyperthyroidism [Unknown]
  - Anger [Unknown]
  - Agitation [Unknown]
  - Hypotension [Unknown]
  - Feeling abnormal [Unknown]
  - Thinking abnormal [Unknown]
  - Crying [Unknown]
  - Blood glucose decreased [Unknown]
  - Muscle spasms [Unknown]
  - Weight decreased [Unknown]
  - Tremor [Unknown]
  - Insomnia [Unknown]

NARRATIVE: CASE EVENT DATE: 20241001
